FAERS Safety Report 5380028-8 (Version None)
Quarter: 2007Q3

REPORT INFORMATION
  Report Type: 
  Country: None (occurrence: None)
  Receive Date: 20070706
  Receipt Date: 20070704
  Transmission Date: 20080115
  Serious: Yes (Death, Hospitalization)
  Sender: FDA-Public Use
  Company Number: GB-BRISTOL-MYERS SQUIBB COMPANY-13762745

PATIENT
  Age: 30 Month
  Sex: Male

DRUGS (7)
  1. CARBOPLATIN [Suspect]
     Indication: RHABDOMYOSARCOMA
  2. ETOPOSIDE [Suspect]
     Indication: RHABDOMYOSARCOMA
  3. IFOSFAMIDE [Suspect]
     Indication: RHABDOMYOSARCOMA
  4. VINCRISTINE SULFATE [Suspect]
     Indication: RHABDOMYOSARCOMA
  5. DACTINOMYCIN [Suspect]
     Indication: RHABDOMYOSARCOMA
  6. EPIRUBICIN [Suspect]
     Indication: RHABDOMYOSARCOMA
  7. RADIATION THERAPY [Suspect]
     Indication: RHABDOMYOSARCOMA

REACTIONS (6)
  - FEBRILE NEUTROPENIA [None]
  - INTERSTITIAL LUNG DISEASE [None]
  - OTOTOXICITY [None]
  - RECALL PHENOMENON [None]
  - RESPIRATORY FAILURE [None]
  - WEANING FAILURE [None]
